FAERS Safety Report 6688193-7 (Version None)
Quarter: 2010Q2

REPORT INFORMATION
  Report Type: 
  Country: None (occurrence: None)
  Receive Date: 20100420
  Receipt Date: 20100408
  Transmission Date: 20101027
  Serious: Yes (Death, Other)
  Sender: FDA-Public Use
  Company Number: RO-PFIZER INC-2010045141

PATIENT
  Age: 34 Year
  Sex: Female

DRUGS (1)
  1. SUTENT [Suspect]
     Indication: RENAL CELL CARCINOMA
     Dosage: 50 MG, 4 WEEKS ON/2WEEKS OFF
     Dates: start: 20090101, end: 20090901

REACTIONS (3)
  - ASTHENIA [None]
  - DEATH [None]
  - OEDEMA [None]
